FAERS Safety Report 5209005-4 (Version None)
Quarter: 2007Q1

REPORT INFORMATION
  Report Type: 
  Country: None (occurrence: None)
  Receive Date: 20070111
  Receipt Date: 20070111
  Transmission Date: 20070707
  Serious: No
  Sender: FDA-Public Use
  Company Number: None

PATIENT
  Sex: Male
  Weight: 79.3795 kg

DRUGS (1)
  1. LEVEMIR [Suspect]
     Indication: DIABETES MELLITUS INSULIN-DEPENDENT
     Dosage: 9 UNITS  QAM  SQ
     Route: 058
     Dates: start: 20070105

REACTIONS (6)
  - CONTRAINDICATION TO MEDICAL TREATMENT [None]
  - CONTUSION [None]
  - DRUG HYPERSENSITIVITY [None]
  - SKIN INDURATION [None]
  - SKIN REACTION [None]
  - SWELLING [None]
